FAERS Safety Report 5199503-4 (Version None)
Quarter: 2006Q4

REPORT INFORMATION
  Report Type: 
  Country: None (occurrence: None)
  Receive Date: 20061229
  Receipt Date: 20061213
  Transmission Date: 20070319
  Serious: Yes (Hospitalization)
  Sender: FDA-Public Use
  Company Number: S06-ITA-05369-01

PATIENT
  Age: 74 Year
  Sex: Female

DRUGS (7)
  1. ELOPRAM (CITALOPRAM) [Suspect]
     Dosage: 40 MG QD PO
     Route: 048
     Dates: start: 20041108, end: 20061208
  2. ASPIRIN [Suspect]
     Dosage: 100 MG QD PO
     Route: 048
     Dates: start: 20041127, end: 20061127
  3. DICLOFENAC SODIUM [Suspect]
     Dosage: 200 MG QD PO
     Route: 048
     Dates: start: 20061113, end: 20061127
  4. AMITRIPTYLINE HCL [Concomitant]
  5. NAPRILENE (ENALAPRIL MALEATE) [Concomitant]
  6. NEBIVOLOLO (NEBIVOLOL HYDROCHLORIDE) [Concomitant]
  7. ALPRAZOLAM [Concomitant]

REACTIONS (3)
  - GASTRIC ULCER [None]
  - HAEMOGLOBIN DECREASED [None]
  - MELAENA [None]
